FAERS Safety Report 7347492-6 (Version None)
Quarter: 2011Q1

REPORT INFORMATION
  Report Type: 
  Country: None (occurrence: None)
  Receive Date: 20110311
  Receipt Date: 20110214
  Transmission Date: 20110831
  Serious: Yes (Other)
  Sender: FDA-Public Use
  Company Number: US-BAYER-201038113NA

PATIENT
  Sex: Female
  Weight: 79 kg

DRUGS (3)
  1. YASMIN [Suspect]
     Indication: ACNE
  2. OCELLA [Suspect]
     Indication: ACNE
  3. YAZ [Suspect]
     Indication: ACNE

REACTIONS (5)
  - CHOLELITHIASIS [None]
  - BACK PAIN [None]
  - CHOLECYSTITIS CHRONIC [None]
  - ABDOMINAL PAIN UPPER [None]
  - INJURY [None]
